FAERS Safety Report 4475492-2 (Version None)
Quarter: 2004Q4

REPORT INFORMATION
  Report Type: 
  Country: None (occurrence: None)
  Receive Date: 20041015
  Receipt Date: 20040827
  Transmission Date: 20050328
  Serious: Yes (Hospitalization, Other)
  Sender: FDA-Public Use
  Company Number: BE-MERCK-0408BEL00023

PATIENT
  Age: 57 Year
  Sex: Male
  Weight: 90 kg

DRUGS (2)
  1. OMEGA-3 MARINE TRIGLYCERIDES [Concomitant]
     Indication: MEDICAL DIET
     Route: 048
     Dates: start: 20040701
  2. ZOCOR [Suspect]
     Indication: HYPERCHOLESTEROLAEMIA
     Route: 048
     Dates: start: 20040501, end: 20040825

REACTIONS (3)
  - ABDOMINAL PAIN UPPER [None]
  - HOSPITALISATION [None]
  - MUSCLE FATIGUE [None]
